FAERS Safety Report 6778847-6 (Version None)
Quarter: 2010Q2

REPORT INFORMATION
  Report Type: 
  Country: None (occurrence: None)
  Receive Date: 20100618
  Receipt Date: 20100609
  Transmission Date: 20101027
  Serious: Yes (Hospitalization)
  Sender: FDA-Public Use
  Company Number: CY-JNJFOC-20100509070

PATIENT
  Sex: Female

DRUGS (2)
  1. TAVANIC [Suspect]
     Indication: SINUSITIS
     Route: 048
  2. CODEINE PHOSPHATE / PARACETAMOL [Concomitant]
     Route: 065

REACTIONS (8)
  - EPICONDYLITIS [None]
  - HAEMORRHAGE [None]
  - HALLUCINATIONS, MIXED [None]
  - HEADACHE [None]
  - MIGRAINE [None]
  - NECK PAIN [None]
  - SLEEP DISORDER [None]
  - TENDONITIS [None]
